FAERS Safety Report 10764248 (Version 3)
Quarter: 2015Q2

REPORT INFORMATION
  Report Type: Spontaneous
  Country: JP (occurrence: JP)
  Receive Date: 20150205
  Receipt Date: 20150625
  Transmission Date: 20150821
  Serious: Yes (Death)
  Sender: FDA-Public Use
  Company Number: JP-ROCHE-1531824

PATIENT
  Age: 47 Year
  Sex: Male
  Weight: 61 kg

DRUGS (14)
  1. PARIET [Concomitant]
     Active Substance: RABEPRAZOLE SODIUM
     Indication: PROPHYLAXIS
     Route: 048
     Dates: start: 20090509, end: 20110218
  2. SULFAMETHOXAZOLE AND TRIMETHOPRIM [Concomitant]
     Active Substance: SULFAMETHOXAZOLE\TRIMETHOPRIM
     Indication: PROPHYLAXIS
     Dosage: TWICE A WEEK
     Route: 048
     Dates: start: 20090422
  3. RINDERON V [Suspect]
     Active Substance: BETAMETHASONE VALERATE
     Indication: STILL^S DISEASE ADULT ONSET
     Dosage: 7.5 1.5MG/DAY OF X TWICE/DAY (UNIT UNCERTAINTY)
     Route: 048
     Dates: start: 20090406, end: 20110223
  4. GLYCYRON [Concomitant]
     Active Substance: AMMONIUM GLYCYRRHIZATE\GLYCINE\METHIONINE
     Indication: PROPHYLAXIS
     Route: 048
  5. ACTEMRA [Suspect]
     Active Substance: TOCILIZUMAB
     Indication: STILL^S DISEASE ADULT ONSET
     Route: 041
     Dates: start: 20100202, end: 20100304
  6. METHOTREXATE [Suspect]
     Active Substance: METHOTREXATE
     Indication: STILL^S DISEASE ADULT ONSET
     Dosage: 6~20 MG
     Route: 048
     Dates: start: 1998
  7. ACTEMRA [Suspect]
     Active Substance: TOCILIZUMAB
     Indication: STILL^S DISEASE ADULT ONSET
     Route: 041
     Dates: start: 20100916, end: 20101014
  8. PREDNISOLONE. [Concomitant]
     Active Substance: PREDNISOLONE
     Indication: STILL^S DISEASE ADULT ONSET
     Dosage: MAX 30MG
     Route: 065
     Dates: start: 1990
  9. KELNAC [Concomitant]
     Active Substance: PLAUNOTOL
     Indication: PROPHYLAXIS
     Route: 048
     Dates: start: 20050513, end: 20110218
  10. VALTREX [Concomitant]
     Active Substance: VALACYCLOVIR HYDROCHLORIDE
     Indication: PROPHYLAXIS
     Route: 048
     Dates: start: 20090528, end: 20110218
  11. VOLTAREN [Concomitant]
     Active Substance: DICLOFENAC SODIUM
     Indication: STILL^S DISEASE ADULT ONSET
     Dosage: SINGLE USE
     Route: 048
     Dates: start: 20050513
  12. ACTEMRA [Suspect]
     Active Substance: TOCILIZUMAB
     Indication: STILL^S DISEASE ADULT ONSET
     Route: 041
     Dates: start: 20090529, end: 20090611
  13. ACTEMRA [Suspect]
     Active Substance: TOCILIZUMAB
     Indication: STILL^S DISEASE ADULT ONSET
     Route: 041
     Dates: start: 20100401, end: 20100701
  14. FOLIAMIN [Concomitant]
     Active Substance: FOLIC ACID
     Indication: PROPHYLAXIS
     Route: 048
     Dates: start: 20090430

REACTIONS (6)
  - Pneumonia [Fatal]
  - Still^s disease adult onset [Fatal]
  - Histiocytosis haematophagic [Fatal]
  - Off label use [Unknown]
  - Seizure [Fatal]
  - Influenza [Fatal]

NARRATIVE: CASE EVENT DATE: 20110219
